FAERS Safety Report 5035305-7 (Version None)
Quarter: 2006Q2

REPORT INFORMATION
  Report Type: 
  Country: None (occurrence: None)
  Receive Date: 20060523
  Receipt Date: 20050606
  Transmission Date: 20061013
  Serious: Yes (Death)
  Sender: FDA-Public Use
  Company Number: 2005BH000118

PATIENT
  Sex: Female

DRUGS (2)
  1. HEPARIN SODIUM [Suspect]
  2. EPTIFIBATIDE [Concomitant]

REACTIONS (1)
  - RETROPERITONEAL HAEMORRHAGE [None]
